FAERS Safety Report 21969007 (Version 1)
Quarter: 2023Q1

REPORT INFORMATION
  Report Type: Spontaneous
  Country: US (occurrence: None)
  Receive Date: 20230207
  Receipt Date: 20230207
  Transmission Date: 20230418
  Serious: Yes (Death)
  Sender: FDA-Public Use
  Company Number: None

PATIENT
  Age: 59 Year
  Sex: Female
  Weight: 77.79 kg

DRUGS (8)
  1. TEMOZOLOMIDE [Suspect]
     Active Substance: TEMOZOLOMIDE
     Indication: Lung neoplasm malignant
     Dosage: FREQUENCY : DAILY;?
     Route: 048
     Dates: start: 202212
  2. ANASTROZOLE [Concomitant]
  3. GLIMEPIRIDE [Concomitant]
  4. JANUVIA [Concomitant]
  5. LYNPARZA [Concomitant]
  6. ONDANSETRON [Concomitant]
  7. PROCHLORPERAZINE [Concomitant]
  8. PROMETHAZINE [Concomitant]

REACTIONS (1)
  - Death [None]
